FAERS Safety Report 7809891-5 (Version None)
Quarter: 2011Q4

REPORT INFORMATION
  Report Type: 
  Country: None (occurrence: None)
  Receive Date: 20111012
  Receipt Date: 20110928
  Transmission Date: 20120403
  Serious: Yes (Other)
  Sender: FDA-Public Use
  Company Number: PHHY2011BR89356

PATIENT
  Age: 47 Year
  Sex: Male

DRUGS (2)
  1. CAPTOPRIL [Suspect]
     Dosage: 25 MG, BID
  2. GLYBURIDE [Suspect]
     Dosage: 5 MG, QD

REACTIONS (3)
  - OEDEMA PERIPHERAL [None]
  - VARICOSE VEIN [None]
  - BLOOD PRESSURE INCREASED [None]
